FAERS Safety Report 23424923 (Version 1)
Quarter: 2024Q1

REPORT INFORMATION
  Report Type: Spontaneous
  Country: US (occurrence: US)
  Receive Date: 20240121
  Receipt Date: 20240121
  Transmission Date: 20240410
  Serious: Yes (Other)
  Sender: FDA-Public Use
  Company Number: US-STRIDES ARCOLAB LIMITED-2024SP000476

PATIENT
  Age: 45 Year
  Sex: Female

DRUGS (2)
  1. DEXTROAMPHETAMINE SULFATE [Suspect]
     Active Substance: DEXTROAMPHETAMINE SULFATE
     Indication: Migraine
     Dosage: UNK
     Route: 065
  2. DEXTROAMPHETAMINE SULFATE [Suspect]
     Active Substance: DEXTROAMPHETAMINE SULFATE
     Dosage: UNK (STARTED AGAIN)
     Route: 065

REACTIONS (2)
  - Rebound effect [Recovered/Resolved]
  - Off label use [Unknown]
